FAERS Safety Report 14987373 (Version 1)
Quarter: 2018Q2

REPORT INFORMATION
  Report Type: Spontaneous
  Country: US (occurrence: US)
  Receive Date: 20180518
  Receipt Date: 20180518
  Transmission Date: 20180711
  Serious: Yes (Hospitalization, Other)
  Sender: FDA-Public Use
  Company Number: None

PATIENT
  Age: 74 Year
  Sex: Female
  Weight: 66.6 kg

DRUGS (12)
  1. BLOOD PRESSURE MED [Concomitant]
  2. LEVOTHYROIXIN [Concomitant]
  3. FLAXSEED [Concomitant]
     Active Substance: FLAX SEED
  4. AMILOPIDINE [Concomitant]
  5. CALCIUM SUPPLEMENT [Concomitant]
     Active Substance: CALCIUM
  6. COQ10 [Concomitant]
     Active Substance: UBIDECARENONE
  7. DONA (GLUCOSAMINE COMPLEX) [Concomitant]
  8. SENIOR VITAMIN [Concomitant]
  9. POTWASSIUM [Concomitant]
  10. VIBERZI [Suspect]
     Active Substance: ELUXADOLINE
     Indication: IRRITABLE BOWEL SYNDROME
     Dosage: ?          QUANTITY:8 DF DOSAGE FORM;?
     Route: 048
     Dates: start: 20180514, end: 20180515
  11. BENAZARIL [Concomitant]
  12. SIMVISTATIN [Concomitant]
     Active Substance: SIMVASTATIN

REACTIONS (4)
  - Dehydration [None]
  - Pancreatitis [None]
  - Constipation [None]
  - Contraindication to medical treatment [None]

NARRATIVE: CASE EVENT DATE: 20180514
